FAERS Safety Report 16081712 (Version 1)
Quarter: 2019Q1

REPORT INFORMATION
  Report Type: Spontaneous
  Country: JP (occurrence: JP)
  Receive Date: 20190316
  Receipt Date: 20190316
  Transmission Date: 20190418
  Serious: Yes (Other)
  Sender: FDA-Public Use
  Company Number: PHHY2019JP057079

PATIENT
  Age: 60 Year
  Sex: Female

DRUGS (5)
  1. DEXMEDETOMIDINE. [Suspect]
     Active Substance: DEXMEDETOMIDINE
     Indication: SEDATIVE THERAPY
     Dosage: INITIAL LOADING DOSE OF 5 GAMMA FOR 5 MIN FOLLOWED BY 0.3 GAMMA
     Route: 065
  2. ACETYLSALICYLIC ACID [Concomitant]
     Active Substance: ASPIRIN
     Indication: ANTIPLATELET THERAPY
     Dosage: 100 MG, QD
     Route: 065
  3. CLOPIDOGREL [Concomitant]
     Active Substance: CLOPIDOGREL BISULFATE
     Indication: ANTIPLATELET THERAPY
     Dosage: 75 MG, QD
     Route: 065
  4. HYDROXYZINE [Suspect]
     Active Substance: HYDROXYZINE HYDROCHLORIDE
     Indication: LOCAL ANAESTHESIA
     Dosage: 25 MG, UNK
     Route: 042
  5. PENTAZOCINE [Suspect]
     Active Substance: PENTAZOCINE
     Indication: LOCAL ANAESTHESIA
     Dosage: 15 MG, UNK
     Route: 042

REACTIONS (1)
  - Cardiac arrest [Recovered/Resolved]
